FAERS Safety Report 19054891 (Version 1)
Quarter: 2021Q1

REPORT INFORMATION
  Report Type: Spontaneous
  Country: GB (occurrence: GB)
  Receive Date: 20210325
  Receipt Date: 20210325
  Transmission Date: 20210420
  Serious: Yes (Other)
  Sender: FDA-Public Use
  Company Number: GB-AUROBINDO-AUR-APL-2021-011747

PATIENT
  Age: 15 Year
  Sex: Female

DRUGS (17)
  1. LACOSAMIDE. [Suspect]
     Active Substance: LACOSAMIDE
     Indication: FEBRILE INFECTION-RELATED EPILEPSY SYNDROME
     Dosage: UNK
     Route: 065
  2. THIOPENTONE [Suspect]
     Active Substance: THIOPENTAL SODIUM
     Indication: FEBRILE INFECTION-RELATED EPILEPSY SYNDROME
     Dosage: UNK
     Route: 065
  3. BRIVARACETAM [Suspect]
     Active Substance: BRIVARACETAM
     Indication: SEIZURE
     Dosage: UNK
     Route: 065
  4. CARBAMAZEPINE. [Suspect]
     Active Substance: CARBAMAZEPINE
     Indication: FEBRILE INFECTION-RELATED EPILEPSY SYNDROME
     Dosage: UNK
     Route: 065
  5. METHYLPREDNISOLONE. [Suspect]
     Active Substance: METHYLPREDNISOLONE
     Indication: CYTOKINE STORM
     Dosage: UNK
     Route: 065
  6. METHYLPREDNISOLONE. [Suspect]
     Active Substance: METHYLPREDNISOLONE
     Indication: ENCEPHALITIS AUTOIMMUNE
  7. ANAKINRA [Suspect]
     Active Substance: ANAKINRA
     Indication: ENCEPHALITIS AUTOIMMUNE
     Dosage: UNK
     Route: 065
  8. PHENOBARBITAL. [Suspect]
     Active Substance: PHENOBARBITAL
     Indication: FEBRILE INFECTION-RELATED EPILEPSY SYNDROME
     Dosage: UNK
     Route: 065
  9. SODIUM VALPROATE [Suspect]
     Active Substance: VALPROATE SODIUM
     Indication: FEBRILE INFECTION-RELATED EPILEPSY SYNDROME
     Dosage: UNK
     Route: 065
  10. PHENYTOIN. [Suspect]
     Active Substance: PHENYTOIN
     Indication: FEBRILE INFECTION-RELATED EPILEPSY SYNDROME
     Dosage: UNK
     Route: 048
  11. CLOBAZAM. [Suspect]
     Active Substance: CLOBAZAM
     Indication: FEBRILE INFECTION-RELATED EPILEPSY SYNDROME
     Dosage: UNK
     Route: 065
  12. TOCILIZUMAB. [Suspect]
     Active Substance: TOCILIZUMAB
     Indication: ENCEPHALITIS AUTOIMMUNE
  13. MIDAZOLAM. [Suspect]
     Active Substance: MIDAZOLAM
     Indication: FEBRILE INFECTION-RELATED EPILEPSY SYNDROME
     Dosage: UNK
     Route: 065
  14. OXCARBAZEPINE. [Suspect]
     Active Substance: OXCARBAZEPINE
     Indication: FEBRILE INFECTION-RELATED EPILEPSY SYNDROME
     Dosage: UNK
     Route: 065
  15. TOCILIZUMAB. [Suspect]
     Active Substance: TOCILIZUMAB
     Indication: CYTOKINE STORM
     Dosage: UNK
     Route: 065
  16. LEVETIRACETAM. [Suspect]
     Active Substance: LEVETIRACETAM
     Indication: FEBRILE INFECTION-RELATED EPILEPSY SYNDROME
     Dosage: UNK
     Route: 065
  17. ANAKINRA [Suspect]
     Active Substance: ANAKINRA
     Indication: CYTOKINE STORM

REACTIONS (1)
  - Drug ineffective [Unknown]
